FAERS Safety Report 4658793-4 (Version None)
Quarter: 2005Q2

REPORT INFORMATION
  Report Type: 
  Country: None (occurrence: None)
  Receive Date: 20050509
  Receipt Date: 20050425
  Transmission Date: 20051028
  Serious: Yes (Other)
  Sender: FDA-Public Use
  Company Number: 2005063584

PATIENT
  Age: 36 Year
  Sex: Male

DRUGS (8)
  1. SULFASALAZINE [Suspect]
     Indication: COLITIS ULCERATIVE
     Dosage: 3000 MG (1000 ,G. 3 IN D), ORAL
     Route: 048
     Dates: end: 20050419
  2. OMEPRAZOLE [Suspect]
     Indication: GASTRIC ULCER
     Dosage: 20 MG (20 MG, 1 IN 1 D), ORAL
     Route: 048
     Dates: start: 20050318, end: 20050419
  3. FLUVOXAMINE MALEATE [Concomitant]
  4. LAFUTIDINE (LAFUTIDINE) [Concomitant]
  5. LACTOBACILLUS BIFIDUS, LYOPHILIZED (LACTOBACILLUS BIFIDUS, LYOPHILIZED [Concomitant]
  6. TRIMEBUTINE MALEATE (TRIMEBUTINE MALEATE) [Concomitant]
  7. SAIBOKU-TO (HERBAL EXTRACTS NOS) [Concomitant]
  8. PREDNISONE [Concomitant]

REACTIONS (2)
  - DRUG ERUPTION [None]
  - PYREXIA [None]
